FAERS Safety Report 4469205-8 (Version None)
Quarter: 2004Q4

REPORT INFORMATION
  Report Type: 
  Country: None (occurrence: None)
  Receive Date: 20041008
  Receipt Date: 20040928
  Transmission Date: 20050328
  Serious: Yes (Other)
  Sender: FDA-Public Use
  Company Number: PHEH2004US10486

PATIENT
  Age: 27 Year
  Sex: Male

DRUGS (4)
  1. CLOZARIL [Suspect]
     Indication: SCHIZOPHRENIA
     Dosage: 500 MG, QD
     Route: 048
  2. LEXAPRO [Suspect]
     Dosage: 10 MG, QD
     Route: 048
     Dates: start: 20031201
  3. LEXAPRO [Suspect]
     Dosage: 20 MG, QD
     Route: 048
  4. COLACE [Concomitant]
     Dosage: 100 MG, QD

REACTIONS (3)
  - DRUG INTERACTION [None]
  - DRUG LEVEL ABOVE THERAPEUTIC [None]
  - HALLUCINATION, AUDITORY [None]
